FAERS Safety Report 18505781 (Version 2)
Quarter: 2020Q4

REPORT INFORMATION
  Report Type: Spontaneous
  Country: PL (occurrence: PL)
  Receive Date: 20201116
  Receipt Date: 20201201
  Transmission Date: 20210114
  Serious: Yes (Other)
  Sender: FDA-Public Use
  Company Number: NVSC2020PL305423

PATIENT
  Age: 77 Year
  Sex: Female

DRUGS (6)
  1. PIPERACILLIN/TAZOBACTAM [Suspect]
     Active Substance: PIPERACILLIN SODIUM\TAZOBACTAM SODIUM
     Indication: COVID-19
     Dosage: UNK
     Route: 065
  2. BINOCRIT [Suspect]
     Active Substance: ERYTHROPOIETIN
     Indication: COVID-19
     Dosage: UNK
     Route: 065
  3. ARECHIN [Suspect]
     Active Substance: CHLOROQUINE PHOSPHATE
     Indication: COVID-19
     Dosage: UNK
     Route: 065
  4. AMOXICILLIN SODIUM,POTASSIUM CLAVULANATE [Suspect]
     Active Substance: AMOXICILLIN\CLAVULANATE POTASSIUM
     Indication: COVID-19
     Dosage: UNK
     Route: 065
  5. FRAXIPARINE [Suspect]
     Active Substance: NADROPARIN CALCIUM
     Indication: COVID-19
     Dosage: UNK
     Route: 065
  6. KALETRA [Suspect]
     Active Substance: LOPINAVIR\RITONAVIR
     Indication: COVID-19
     Dosage: UNK
     Route: 065

REACTIONS (4)
  - Off label use [Unknown]
  - Drug ineffective for unapproved indication [Unknown]
  - Disease progression [Unknown]
  - Drug ineffective [Unknown]
